FAERS Safety Report 10216835 (Version 1)
Quarter: 2014Q2

REPORT INFORMATION
  Report Type: Spontaneous
  Country: US (occurrence: US)
  Receive Date: 20140604
  Receipt Date: 20140604
  Transmission Date: 20141212
  Serious: Yes (Other)
  Sender: FDA-Public Use
  Company Number: US-ASTRAZENECA-2014SE36816

PATIENT
  Age: 81 Year
  Sex: Female
  Weight: 88 kg

DRUGS (13)
  1. NEXIUM [Suspect]
     Indication: REGURGITATION
     Route: 048
     Dates: start: 2001
  2. NEXIUM [Suspect]
     Indication: THROAT IRRITATION
     Route: 048
     Dates: start: 2001
  3. METOPROLOL SUCC [Suspect]
     Indication: BLOOD PRESSURE ABNORMAL
     Route: 048
     Dates: start: 2004
  4. METFORMIN [Suspect]
     Indication: DIABETES MELLITUS
     Route: 048
     Dates: start: 2014
  5. ULTRAM [Suspect]
     Indication: ARTHRALGIA
     Route: 065
  6. DOXYCYCLINE HYCLATE [Concomitant]
     Indication: URINARY TRACT INFECTION
     Route: 048
     Dates: start: 20140518
  7. PROBIOTIC ACIDOPHILUS [Concomitant]
     Indication: SUPPLEMENTATION THERAPY
     Route: 048
     Dates: start: 20140518
  8. ZANTAC [Concomitant]
     Route: 048
     Dates: start: 2014
  9. GLYCOTROL [Concomitant]
     Indication: DIABETES MELLITUS
     Route: 048
     Dates: start: 2014
  10. VOLTAREN [Concomitant]
     Indication: BLOOD CHOLESTEROL INCREASED
     Dosage: 10/40 MG UNK
     Route: 048
     Dates: start: 2002
  11. LEVOTHYROXINE [Concomitant]
     Indication: THYROID DISORDER
     Route: 048
     Dates: start: 2012
  12. CELEXA [Concomitant]
     Indication: ANXIETY
     Route: 048
     Dates: start: 2010
  13. VESICARE [Concomitant]
     Indication: INCONTINENCE
     Dates: start: 2008

REACTIONS (8)
  - Urinary tract infection [Unknown]
  - Arthritis [Unknown]
  - Gastrooesophageal reflux disease [Unknown]
  - Cystitis [Unknown]
  - Nausea [Unknown]
  - Vomiting [Unknown]
  - Throat irritation [Unknown]
  - Drug ineffective [None]
